FAERS Safety Report 18073429 (Version 3)
Quarter: 2022Q2

REPORT INFORMATION
  Report Type: Report from Study
  Country: BR (occurrence: BR)
  Receive Date: 20200727
  Receipt Date: 20220624
  Transmission Date: 20220720
  Serious: Yes (Hospitalization)
  Sender: FDA-Public Use
  Company Number: BR-VIIV HEALTHCARE ULC-BR2020AMR128692

PATIENT

DRUGS (15)
  1. ACETAMINOPHEN [Suspect]
     Active Substance: ACETAMINOPHEN
     Indication: Pain
     Dosage: 500 MG, AS REQUIRED
  2. FOLIC ACID [Suspect]
     Active Substance: FOLIC ACID
     Indication: Neural tube defect
     Dosage: 5 MG, QD THE FIRST WEEKS
     Dates: start: 20191023, end: 20191113
  3. CEPHALEXIN [Suspect]
     Active Substance: CEPHALEXIN
     Indication: Bacteriuria in pregnancy
     Dosage: 500 MG, QID
     Dates: start: 20191105
  4. CEPHALEXIN [Suspect]
     Active Substance: CEPHALEXIN
     Indication: Wound secretion
     Dosage: 500 MG, QID
     Dates: start: 20200526, end: 20200601
  5. CEPHALEXIN [Suspect]
     Active Substance: CEPHALEXIN
     Indication: Abdominal pain
  6. CEPHALEXIN [Suspect]
     Active Substance: CEPHALEXIN
     Indication: Hyperaemia
  7. NITROFURANTOIN [Suspect]
     Active Substance: NITROFURANTOIN
     Indication: Bacteriuria in pregnancy
     Dosage: 100 MG, QID
     Dates: start: 20191127, end: 20191204
  8. VITAMIN D [Suspect]
     Active Substance: VITAMIN D NOS
     Indication: Product used for unknown indication
     Dosage: 4 DF, Z (4 TABLETS OF 7,000U TO BE TAKEN WEEKLY FOR 4 WEEKS)
     Dates: start: 20200227
  9. LAMIVUDINE\TENOFOVIR [Suspect]
     Active Substance: LAMIVUDINE\TENOFOVIR
     Indication: HIV infection
     Dosage: UNK
  10. ATAZANAVIR [Suspect]
     Active Substance: ATAZANAVIR
     Indication: HIV infection
     Dosage: 300 MG, QD
  11. RITONAVIR [Suspect]
     Active Substance: RITONAVIR
     Indication: HIV infection
     Dosage: 100 MG, QD
  12. PENICILLIN G BENZATHINE [Concomitant]
     Active Substance: PENICILLIN G BENZATHINE
     Indication: Syphilis
     Dosage: UNK, 7.2 MU
     Dates: start: 201911
  13. PENICILLIN G BENZATHINE [Concomitant]
     Active Substance: PENICILLIN G BENZATHINE
     Dosage: UNK
     Dates: start: 202004
  14. PENICILLIN G BENZATHINE [Concomitant]
     Active Substance: PENICILLIN G BENZATHINE
     Dosage: UNK
     Dates: start: 202005
  15. DIMENHYDRINATE [Concomitant]
     Active Substance: DIMENHYDRINATE
     Indication: Product used for unknown indication
     Dosage: 100 MG, SPORADICALLY

REACTIONS (11)
  - Female sterilisation [Unknown]
  - Caesarean section [Unknown]
  - Bacteriuria [Unknown]
  - Headache [Recovered/Resolved]
  - Back pain [Recovered/Resolved]
  - Abdominal pain [Recovered/Resolved]
  - Hyperaemia [Recovered/Resolved]
  - Wound secretion [Recovered/Resolved]
  - Live birth [Unknown]
  - Exposure during pregnancy [Unknown]
  - Maternal exposure during breast feeding [Unknown]

NARRATIVE: CASE EVENT DATE: 20191127
